FAERS Safety Report 10703269 (Version 2)
Quarter: 2015Q1

REPORT INFORMATION
  Report Type: Spontaneous
  Country: US (occurrence: US)
  Receive Date: 20150112
  Receipt Date: 20150220
  Transmission Date: 20150721
  Serious: No
  Sender: FDA-Public Use
  Company Number: US-009507513-1501USA001218

PATIENT

DRUGS (1)
  1. IMPLANON [Suspect]
     Active Substance: ETONOGESTREL
     Dosage: 1ROD / THREE YEARS
     Route: 059
     Dates: start: 201204

REACTIONS (2)
  - No adverse event [Unknown]
  - Medical device complication [Unknown]
